FAERS Safety Report 7237768-5 (Version None)
Quarter: 2011Q1

REPORT INFORMATION
  Report Type: 
  Country: None (occurrence: None)
  Receive Date: 20110121
  Receipt Date: 20110112
  Transmission Date: 20110831
  Serious: Yes (Hospitalization)
  Sender: FDA-Public Use
  Company Number: US-ROCHE-753126

PATIENT
  Age: 63 Year
  Sex: Female

DRUGS (4)
  1. BEVACIZUMAB [Suspect]
     Indication: OVARIAN CANCER
     Route: 065
  2. LOVENOX [Concomitant]
  3. PEMETREXED [Suspect]
     Indication: OVARIAN CANCER
     Route: 065
  4. LOVENOX [Concomitant]

REACTIONS (1)
  - MENTAL STATUS CHANGES [None]
